FAERS Safety Report 7542261-6 (Version None)
Quarter: 2011Q2

REPORT INFORMATION
  Report Type: 
  Country: None (occurrence: None)
  Receive Date: 20110613
  Receipt Date: 20110603
  Transmission Date: 20111010
  Serious: Yes (Hospitalization)
  Sender: FDA-Public Use
  Company Number: US-SANOFI-AVENTIS-2011SA030344

PATIENT
  Age: 81 Year
  Sex: Female

DRUGS (5)
  1. PRAVASTATIN [Concomitant]
  2. DILTIAZEM [Concomitant]
  3. OMEPRAZOLE [Concomitant]
  4. VITAMIN D [Concomitant]
  5. PLAVIX [Suspect]
     Indication: ATRIAL FIBRILLATION
     Route: 048
     Dates: start: 20110101, end: 20110501

REACTIONS (5)
  - HEART RATE INCREASED [None]
  - VITAMIN D DECREASED [None]
  - MALAISE [None]
  - ATRIAL FIBRILLATION [None]
  - ASTHENIA [None]
